FAERS Safety Report 26203445 (Version 1)
Quarter: 2025Q4

REPORT INFORMATION
  Report Type: Spontaneous
  Country: GB (occurrence: GB)
  Receive Date: 20251226
  Receipt Date: 20251226
  Transmission Date: 20260119
  Serious: Yes (Hospitalization, Other)
  Sender: BAXTER
  Company Number: GB-MLMSERVICE-20251215-PI749007-00303-1

PATIENT
  Age: 58 Year
  Sex: Male

DRUGS (7)
  1. FUROSEMIDE [Interacting]
     Active Substance: FUROSEMIDE
     Indication: Ascites
     Route: 065
     Dates: start: 2023
  2. SPIRONOLACTONE [Interacting]
     Active Substance: SPIRONOLACTONE
     Indication: Ascites
     Dosage: 100 MG, QD
     Route: 065
     Dates: start: 2023, end: 2023
  3. CARVEDILOL [Interacting]
     Active Substance: CARVEDILOL
     Indication: Gastrooesophageal variceal haemorrhage prophylaxis
     Dosage: 3.125 MG, BID
     Route: 065
     Dates: start: 2023
  4. LACTULOSE [Interacting]
     Active Substance: LACTULOSE
     Indication: Hepatic encephalopathy prophylaxis
     Route: 065
     Dates: start: 2023
  5. THIAMINE [Suspect]
     Active Substance: THIAMINE
     Indication: Prophylaxis
     Route: 065
     Dates: start: 2023
  6. CIPROFLOXACIN [Interacting]
     Active Substance: CIPROFLOXACIN
     Indication: Prophylaxis
     Dosage: UNK, LONG-TERM
     Route: 065
     Dates: start: 2023
  7. PIPERACILLIN AND TAZOBACTAM [Concomitant]
     Active Substance: PIPERACILLIN SODIUM\TAZOBACTAM SODIUM
     Indication: Peritonitis bacterial
     Dosage: UNK
     Route: 065

REACTIONS (3)
  - Hyperkalaemia [Recovered/Resolved]
  - Orthostatic hypotension [Not Recovered/Not Resolved]
  - Hyponatraemia [Not Recovered/Not Resolved]

NARRATIVE: CASE EVENT DATE: 20230101
